FAERS Safety Report 11509919 (Version 1)
Quarter: 2015Q3

REPORT INFORMATION
  Report Type: Spontaneous
  Country: US (occurrence: US)
  Receive Date: 20150915
  Receipt Date: 20150915
  Transmission Date: 20151125
  Serious: No
  Sender: FDA-Public Use
  Company Number: US-JNJFOC-20150823845

PATIENT
  Age: 84 Year
  Sex: Female
  Weight: 58.97 kg

DRUGS (5)
  1. HYDROCHLOROTHIAZIDE. [Concomitant]
     Active Substance: HYDROCHLOROTHIAZIDE
     Indication: HYPERTENSION
     Route: 065
  2. ZYRTEC-D [Suspect]
     Active Substance: CETIRIZINE HYDROCHLORIDE\PSEUDOEPHEDRINE HYDROCHLORIDE
     Route: 048
  3. CALCIUM [Concomitant]
     Active Substance: CALCIUM
     Indication: PRODUCT USED FOR UNKNOWN INDICATION
     Dosage: 2 DAILY
     Route: 065
  4. GLUCOSAMINE / CHONDROITIN [Concomitant]
     Indication: MUSCULOSKELETAL STIFFNESS
     Dosage: 2 DAILY
     Route: 065
  5. ZYRTEC-D [Suspect]
     Active Substance: CETIRIZINE HYDROCHLORIDE\PSEUDOEPHEDRINE HYDROCHLORIDE
     Indication: SEASONAL ALLERGY
     Dosage: 6 TOTAL OVER 3 DAYS
     Route: 048
     Dates: start: 20150824, end: 20150826

REACTIONS (3)
  - Wrong patient received medication [Unknown]
  - Overdose [Unknown]
  - Drug ineffective [Unknown]
